FAERS Safety Report 6039814-3 (Version None)
Quarter: 2009Q1

REPORT INFORMATION
  Report Type: 
  Country: None (occurrence: None)
  Receive Date: 20090116
  Receipt Date: 20090105
  Transmission Date: 20090719
  Serious: Yes (Hospitalization, Other)
  Sender: FDA-Public Use
  Company Number: GB-SOLVAY-00308005611

PATIENT
  Sex: Male

DRUGS (6)
  1. IBUPROFEN TABLETS [Concomitant]
     Indication: DRUG USE FOR UNKNOWN INDICATION
     Dosage: DAILY DOSE:  UNKNOWN
     Route: 065
  2. TESTOSTERONE [Suspect]
     Indication: DRUG USE FOR UNKNOWN INDICATION
     Dosage: DAILY DOSE: 50 MILLIGRAM(S)
     Route: 062
     Dates: start: 20080601, end: 20080801
  3. TESTOSTERONE [Suspect]
     Dosage: DAILY DOSE: 100 MILLIGRAM(S)
     Route: 062
     Dates: start: 20080801, end: 20081025
  4. STEMETIL [Concomitant]
     Indication: DRUG USE FOR UNKNOWN INDICATION
     Dosage: DAILY DOSE:  UNKNOWN
     Route: 065
  5. GAVISCON [Concomitant]
     Indication: DRUG USE FOR UNKNOWN INDICATION
     Dosage: DAILY DOSE:  UNKNOWN
     Route: 065
  6. ACETAMINOPHEN AND CODEINE PHOSPHATE [Concomitant]
     Indication: DRUG USE FOR UNKNOWN INDICATION
     Dosage: DAILY DOSE:  UNKNOWN
     Route: 065

REACTIONS (5)
  - CHEST DISCOMFORT [None]
  - DEPRESSION [None]
  - POLYCYTHAEMIA [None]
  - RAYNAUD'S PHENOMENON [None]
  - VISUAL IMPAIRMENT [None]
